FAERS Safety Report 23705949 (Version 1)
Quarter: 2024Q2

REPORT INFORMATION
  Report Type: Spontaneous
  Country: CN (occurrence: CN)
  Receive Date: 20240404
  Receipt Date: 20240404
  Transmission Date: 20240715
  Serious: Yes (Other)
  Sender: FDA-Public Use
  Company Number: CN-009507513-2404CHN000632

PATIENT
  Age: 72 Year
  Sex: Male

DRUGS (18)
  1. KEYTRUDA [Suspect]
     Active Substance: PEMBROLIZUMAB
     Indication: Oesophageal squamous cell carcinoma stage IV
     Dosage: 200MG, D1
     Dates: start: 20220424, end: 20220424
  2. KEYTRUDA [Suspect]
     Active Substance: PEMBROLIZUMAB
     Indication: Metastases to liver
     Dosage: 200MG, D1
     Dates: start: 20220517, end: 20220517
  3. KEYTRUDA [Suspect]
     Active Substance: PEMBROLIZUMAB
     Dosage: 200MG, D1
     Dates: start: 20220617, end: 20220617
  4. KEYTRUDA [Suspect]
     Active Substance: PEMBROLIZUMAB
     Dosage: 200MG, D1
     Dates: start: 20220720, end: 20220720
  5. KEYTRUDA [Suspect]
     Active Substance: PEMBROLIZUMAB
     Dosage: 200MG, D1
     Dates: start: 20220811, end: 20220811
  6. KEYTRUDA [Suspect]
     Active Substance: PEMBROLIZUMAB
     Dosage: 200MG, D1
     Dates: start: 20220910, end: 20220910
  7. FLUOROURACIL [Suspect]
     Active Substance: FLUOROURACIL
     Indication: Oesophageal squamous cell carcinoma stage IV
     Dosage: UNK, CYCLICAL
     Dates: start: 20220424, end: 20220424
  8. FLUOROURACIL [Suspect]
     Active Substance: FLUOROURACIL
     Indication: Metastases to liver
     Dosage: UNK, CYCLICAL
     Dates: start: 20220517, end: 20220517
  9. FLUOROURACIL [Suspect]
     Active Substance: FLUOROURACIL
     Dates: start: 20220617, end: 20220617
  10. FLUOROURACIL [Suspect]
     Active Substance: FLUOROURACIL
     Dates: start: 20220720, end: 20220720
  11. FLUOROURACIL [Suspect]
     Active Substance: FLUOROURACIL
     Dates: start: 20220811, end: 20220811
  12. FLUOROURACIL [Suspect]
     Active Substance: FLUOROURACIL
     Dates: start: 20220910, end: 20220910
  13. CISPLATIN [Suspect]
     Active Substance: CISPLATIN
     Indication: Oesophageal squamous cell carcinoma stage IV
     Dosage: UNK, CYCLICAL
     Dates: start: 20220424, end: 20220424
  14. CISPLATIN [Suspect]
     Active Substance: CISPLATIN
     Indication: Metastases to liver
     Dosage: UNK, CYCLICAL
     Dates: start: 20220517, end: 20220517
  15. CISPLATIN [Suspect]
     Active Substance: CISPLATIN
     Dates: start: 20220617, end: 20220617
  16. CISPLATIN [Suspect]
     Active Substance: CISPLATIN
     Dates: start: 20220720, end: 20220720
  17. CISPLATIN [Suspect]
     Active Substance: CISPLATIN
     Dates: start: 20220811, end: 20220811
  18. CISPLATIN [Suspect]
     Active Substance: CISPLATIN
     Dates: start: 20220910, end: 20220910

REACTIONS (16)
  - Granulomatous liver disease [Recovering/Resolving]
  - Hepatic necrosis [Recovering/Resolving]
  - Alveolar lung disease [Recovering/Resolving]
  - Interstitial lung disease [Recovering/Resolving]
  - Therapy partial responder [Recovered/Resolved]
  - Chronic papillomatous dermatitis [Recovering/Resolving]
  - Hepatic mass [Recovering/Resolving]
  - Hepatic steatosis [Recovering/Resolving]
  - Hepatic cyst [Recovering/Resolving]
  - Renal cyst [Recovering/Resolving]
  - Lung infiltration [Recovering/Resolving]
  - Inappropriate schedule of product administration [Unknown]
  - Inappropriate schedule of product administration [Unknown]
  - Inappropriate schedule of product administration [Unknown]
  - Inappropriate schedule of product administration [Unknown]
  - Inappropriate schedule of product administration [Unknown]

NARRATIVE: CASE EVENT DATE: 20220517
